FAERS Safety Report 5710659-4 (Version None)
Quarter: 2008Q2

REPORT INFORMATION
  Report Type: 
  Country: None (occurrence: None)
  Receive Date: 20080415
  Receipt Date: 20080407
  Transmission Date: 20081010
  Serious: Yes (Other)
  Sender: FDA-Public Use
  Company Number: E2090-00431-SPO-JP

PATIENT
  Age: 56 Year
  Sex: Female

DRUGS (1)
  1. ZONISAMIDE [Suspect]
     Dosage: ORAL
     Route: 048
     Dates: start: 20070101, end: 20070201

REACTIONS (1)
  - DRUG RASH WITH EOSINOPHILIA AND SYSTEMIC SYMPTOMS [None]
